FAERS Safety Report 8613425-5 (Version None)
Quarter: 2012Q3

REPORT INFORMATION
  Report Type: 
  Country: None (occurrence: None)
  Receive Date: 20120822
  Receipt Date: 20120807
  Transmission Date: 20120928
  Serious: Yes (Hospitalization, Other)
  Sender: FDA-Public Use
  Company Number: US-009507513-2011SP031788

PATIENT

DRUGS (7)
  1. NUVARING [Suspect]
     Indication: CONTRACEPTION
     Dates: start: 20090601, end: 20091211
  2. COUMADIN [Suspect]
     Indication: ANTICOAGULANT THERAPY
     Dates: start: 20091201, end: 20100301
  3. HYDROCHLOROTHIAZIDE [Concomitant]
     Indication: HYPERTENSION
     Dates: start: 20090101
  4. VITAMIN B COMPLEX CAP [Concomitant]
     Indication: MEDICAL DIET
     Dates: start: 20091101, end: 20091211
  5. HOODIA GORDONII [Concomitant]
     Indication: PRODUCT USED FOR UNKNOWN INDICATION
     Dates: start: 20091101, end: 20091211
  6. NUVARING [Suspect]
     Indication: MENSTRUAL CYCLE MANAGEMENT
     Dates: start: 20090601, end: 20091211
  7. VITAMINS (UNSPECIFIED) [Concomitant]
     Indication: MEDICAL DIET
     Dates: start: 20091101, end: 20091211

REACTIONS (13)
  - CARDIOMEGALY [None]
  - OTITIS MEDIA ACUTE [None]
  - COUGH [None]
  - HYPERCOAGULATION [None]
  - METABOLIC SYNDROME [None]
  - PULMONARY EMBOLISM [None]
  - PHARYNGITIS [None]
  - ANGINA PECTORIS [None]
  - DEPRESSION [None]
  - ACUTE SINUSITIS [None]
  - BRONCHITIS [None]
  - DRUG RESISTANCE [None]
  - INTERNATIONAL NORMALISED RATIO INCREASED [None]
